FAERS Safety Report 5405143-1 (Version None)
Quarter: 2007Q3

REPORT INFORMATION
  Report Type: 
  Country: None (occurrence: None)
  Receive Date: 20070803
  Receipt Date: 20070728
  Transmission Date: 20080115
  Serious: Yes (Other)
  Sender: FDA-Public Use
  Company Number: PHRM2007DZ01802

PATIENT
  Age: 32 Year
  Sex: Male

DRUGS (2)
  1. LAMISIL [Suspect]
     Indication: NAIL TINEA
     Dosage: 250 MG, QD
     Route: 048
  2. LAMISIL [Suspect]
     Dosage: 1 DF, BID
     Route: 061

REACTIONS (6)
  - BALANCE DISORDER [None]
  - BLOOD BILIRUBIN INCREASED [None]
  - LUPUS-LIKE SYNDROME [None]
  - NAUSEA [None]
  - SKIN HYPOPIGMENTATION [None]
  - VITILIGO [None]
